FAERS Safety Report 12495610 (Version 1)
Quarter: 2016Q2

REPORT INFORMATION
  Report Type: Spontaneous
  Country: US (occurrence: None)
  Receive Date: 20160623
  Receipt Date: 20160623
  Transmission Date: 20160815
  Serious: Yes (Other)
  Sender: FDA-Public Use
  Company Number: None

PATIENT
  Age: 51 Year
  Sex: Female
  Weight: 64 kg

DRUGS (2)
  1. VALACYCLOVIR [Suspect]
     Active Substance: VALACYCLOVIR HYDROCHLORIDE
     Indication: HERPES SIMPLEX
     Dosage: 12 HR APART ORAL
     Route: 048
     Dates: start: 20160617, end: 20160617
  2. VALACYCLOVIR [Suspect]
     Active Substance: VALACYCLOVIR HYDROCHLORIDE
     Indication: ORAL HERPES
     Dosage: 12 HR APART ORAL
     Route: 048
     Dates: start: 20160617, end: 20160617

REACTIONS (4)
  - Uterine leiomyoma [None]
  - Vomiting [None]
  - Computerised tomogram abdomen abnormal [None]
  - Abdominal pain [None]

NARRATIVE: CASE EVENT DATE: 20160618
